FAERS Safety Report 18058288 (Version 1)
Quarter: 2020Q3

REPORT INFORMATION
  Report Type: Spontaneous
  Country: CH (occurrence: CH)
  Receive Date: 20200723
  Receipt Date: 20200723
  Transmission Date: 20201103
  Serious: Yes (Hospitalization)
  Sender: FDA-Public Use
  Company Number: CH-TEVA-2020-CH-1804943

PATIENT
  Age: 65 Year
  Sex: Male
  Weight: 75 kg

DRUGS (4)
  1. ASPIRIN CARDIO [Suspect]
     Active Substance: ASPIRIN
  2. XARELTO [Suspect]
     Active Substance: RIVAROXABAN
     Dates: end: 20200706
  3. ESOMEP [Concomitant]
     Active Substance: ESOMEPRAZOLE
  4. OLFEN (DICLOFENAC) [Suspect]
     Active Substance: DICLOFENAC
     Route: 065

REACTIONS (1)
  - Haematoma muscle [Recovering/Resolving]

NARRATIVE: CASE EVENT DATE: 20200706
